FAERS Safety Report 25809042 (Version 1)
Quarter: 2025Q3

REPORT INFORMATION
  Report Type: Spontaneous
  Country: US (occurrence: None)
  Receive Date: 20250916
  Receipt Date: 20250916
  Transmission Date: 20251021
  Serious: Yes (Life-Threatening)
  Sender: FDA-CTU
  Company Number: None

PATIENT
  Age: 38 Year
  Sex: Female
  Weight: 79.2 kg

DRUGS (1)
  1. MONOFERRIC [Suspect]
     Active Substance: FERRIC DERISOMALTOSE
     Indication: Iron deficiency anaemia
     Route: 041
     Dates: start: 20250911, end: 20250911

REACTIONS (4)
  - Infusion related reaction [None]
  - Respiratory distress [None]
  - Flushing [None]
  - Chest discomfort [None]

NARRATIVE: CASE EVENT DATE: 20250911
